FAERS Safety Report 8578402 (Version 5)
Quarter: 2013Q1

REPORT INFORMATION
  Report Type: Spontaneous
  Country: US (occurrence: None)
  Receive Date: 20120517
  Receipt Date: 20130118
  Transmission Date: 20140127
  Serious: Yes (Death)
  Sender: FDA-Public Use
  Company Number: 2012SGN00193

PATIENT
  Age: 74 Year
  Sex: Male
  Weight: 78.9 kg

DRUGS (1)
  1. BRENTUXIMAB VEDOTIN [Suspect]
     Indication: NON-HODGKIN^S LYMPHOMA
     Dosage: 1.8 MG/KG, Q21D, INTRAVENOUS
     Route: 042
     Dates: start: 20120328, end: 20120417

REACTIONS (13)
  - Dyspnoea [None]
  - Pyrexia [None]
  - Hypotension [None]
  - Pneumocystis jirovecii pneumonia [None]
  - Respiratory failure [None]
  - Troponin increased [None]
  - Myocardial ischaemia [None]
  - White blood cell count decreased [None]
  - Blood creatinine increased [None]
  - Pulmonary oedema [None]
  - Infection in an immunocompromised host [None]
  - Acute respiratory distress syndrome [None]
  - Lymphadenopathy [None]
